FAERS Safety Report 9808733 (Version 2)
Quarter: 2014Q1

REPORT INFORMATION
  Report Type: Report from Study
  Country: DE (occurrence: TR)
  Receive Date: 20140110
  Receipt Date: 20140115
  Transmission Date: 20141002
  Serious: Yes (Death)
  Sender: FDA-Public Use
  Company Number: DE-ACTELION-A-US2014-93547

PATIENT
  Age: 4 Month
  Sex: Male

DRUGS (1)
  1. VENTAVIS [Suspect]
     Indication: PULMONARY HYPERTENSION
     Dosage: UNK
     Route: 065
     Dates: start: 20131216, end: 20131227

REACTIONS (3)
  - Atrial septal defect [Fatal]
  - Ventricular septal defect [Fatal]
  - Off label use [Unknown]
